FAERS Safety Report 7933866-9 (Version None)
Quarter: 2011Q4

REPORT INFORMATION
  Report Type: 
  Country: None (occurrence: None)
  Receive Date: 20111122
  Receipt Date: 20111109
  Transmission Date: 20120403
  Serious: Yes (Other)
  Sender: FDA-Public Use
  Company Number: HR-ROCHE-1014869

PATIENT

DRUGS (2)
  1. ALTEPLASE [Suspect]
     Indication: INTRAVENTRICULAR HAEMORRHAGE
  2. SUFENTANIL CITRATE [Concomitant]

REACTIONS (1)
  - INTRACRANIAL PRESSURE INCREASED [None]
